FAERS Safety Report 16896241 (Version 1)
Quarter: 2019Q4

REPORT INFORMATION
  Report Type: Spontaneous
  Country: US (occurrence: US)
  Receive Date: 20191008
  Receipt Date: 20191008
  Transmission Date: 20200122
  Serious: No
  Sender: FDA-Public Use
  Company Number: US-TEVA-2019-US-1117398

PATIENT
  Sex: Female

DRUGS (1)
  1. FLUOCINONIDE. [Suspect]
     Active Substance: FLUOCINONIDE
     Indication: RASH
     Route: 065

REACTIONS (1)
  - Rash [Not Recovered/Not Resolved]
